FAERS Safety Report 9287371 (Version 2)
Quarter: 2013Q2

REPORT INFORMATION
  Report Type: Spontaneous
  Country: GB (occurrence: GB)
  Receive Date: 20130514
  Receipt Date: 20130529
  Transmission Date: 20140414
  Serious: Yes (Other)
  Sender: FDA-Public Use
  Company Number: GB-ROCHE-1223260

PATIENT
  Age: 47 Year
  Sex: Male
  Weight: 81 kg

DRUGS (5)
  1. XOLAIR [Suspect]
     Indication: PRODUCT USED FOR UNKNOWN INDICATION
     Route: 058
  2. XOLAIR [Suspect]
     Route: 058
     Dates: start: 20130319
  3. ADCAL-D3 [Concomitant]
  4. PREDNISONE [Concomitant]
  5. MONTELUKAST [Concomitant]

REACTIONS (3)
  - Sialoadenitis [Unknown]
  - Salivary gland calculus [Recovering/Resolving]
  - Swelling face [Recovering/Resolving]
